FAERS Safety Report 8814533 (Version 1)
Quarter: 2012Q4

REPORT INFORMATION
  Report Type: Spontaneous
  Country: US (occurrence: None)
  Receive Date: 20120926
  Receipt Date: 20120926
  Transmission Date: 20130627
  Serious: Yes (Hospitalization)
  Sender: FDA-Public Use
  Company Number: 120419

PATIENT
  Age: 69 Year
  Weight: 90.72 kg

DRUGS (6)
  1. HALFLYTELY AND BISACODYL TABLET BOWEL PREP KIT [Suspect]
     Dosage: 5mg/8oz./1x/PO
     Route: 048
     Dates: start: 20120910
  2. DIOVAN [Concomitant]
  3. SYNTHROID [Concomitant]
  4. XANAX [Concomitant]
  5. HYDROCODONE BIT/ACETAMINOPHEN [Concomitant]
  6. DIAZAPAM [Concomitant]

REACTIONS (10)
  - Cardiac flutter [None]
  - Flushing [None]
  - Dyspnoea [None]
  - Tremor [None]
  - Myalgia [None]
  - Tremor [None]
  - Back pain [None]
  - Vomiting [None]
  - Chest pain [None]
  - Hypersensitivity [None]
